FAERS Safety Report 5161754-2 (Version None)
Quarter: 2006Q4

REPORT INFORMATION
  Report Type: 
  Country: None (occurrence: None)
  Receive Date: 20061130
  Receipt Date: 20061121
  Transmission Date: 20070319
  Serious: Yes (Hospitalization)
  Sender: FDA-Public Use
  Company Number: FR-GLAXOSMITHKLINE-B0448531A

PATIENT
  Age: 50 Year
  Sex: Female

DRUGS (1)
  1. NARAMIG [Suspect]
     Dosage: 1TAB AS REQUIRED
     Route: 048
     Dates: start: 20030101, end: 20061101

REACTIONS (3)
  - ABDOMINAL PAIN [None]
  - COLITIS ISCHAEMIC [None]
  - RECTAL HAEMORRHAGE [None]
